FAERS Safety Report 8290181-4 (Version None)
Quarter: 2012Q2

REPORT INFORMATION
  Report Type: 
  Country: None (occurrence: None)
  Receive Date: 20120412
  Receipt Date: 20120412
  Transmission Date: 20120825
  Serious: Yes (Hospitalization)
  Sender: FDA-Public Use
  Company Number: None

PATIENT
  Age: 59 Year
  Sex: Male
  Weight: 73 kg

DRUGS (2)
  1. ABACAVIR [Suspect]
     Indication: HIV INFECTION
     Dosage: 600 MG EVERY DAY PO
     Route: 048
     Dates: start: 20110512, end: 20120407
  2. LAMIVUDINE [Suspect]
     Indication: HIV INFECTION
     Dosage: 150 MG EVERY DAY PO
     Route: 048
     Dates: start: 20111229, end: 20120407

REACTIONS (1)
  - LACTIC ACIDOSIS [None]
